FAERS Safety Report 5907677-X (Version None)
Quarter: 2008Q4

REPORT INFORMATION
  Report Type: 
  Country: None (occurrence: None)
  Receive Date: 20081003
  Receipt Date: 19970227
  Transmission Date: 20090506
  Serious: Yes (Death, Hospitalization)
  Sender: FDA-Public Use
  Company Number: IT-ROCHE-76743

PATIENT
  Sex: Female

DRUGS (7)
  1. CAPECITABINE [Suspect]
     Indication: BREAST CANCER
     Dosage: CYCLE OF 14 DAYS TREATMENT FOLLOWED BY 7 DAYS REST
     Route: 048
     Dates: start: 19970116, end: 19970219
  2. MORPHINE [Concomitant]
     Route: 048
     Dates: start: 19970112, end: 19970225
  3. OMEPRAZOLE [Concomitant]
     Route: 048
     Dates: start: 19970112, end: 19970225
  4. VITAMIN B COMPLEX CAP [Concomitant]
     Dosage: DAILY
     Route: 048
     Dates: start: 19970221, end: 19970225
  5. DEXAMETHASONE [Concomitant]
     Route: 030
     Dates: start: 19970112
  6. ISOSORBIDE MONONITRATE [Concomitant]
     Dosage: DAILY
     Route: 048
     Dates: end: 19970225
  7. LOPERAMIDE HCL [Concomitant]
     Dosage: DAILY
     Route: 048
     Dates: start: 19970218, end: 19970225

REACTIONS (7)
  - ALTERED STATE OF CONSCIOUSNESS [None]
  - COAGULOPATHY [None]
  - DEATH [None]
  - DEHYDRATION [None]
  - GRANULOCYTOPENIA [None]
  - HYPERGLYCAEMIA [None]
  - HYPOTENSION [None]
